FAERS Safety Report 7905929-5 (Version None)
Quarter: 2011Q4

REPORT INFORMATION
  Report Type: 
  Country: None (occurrence: None)
  Receive Date: 20111110
  Receipt Date: 20110113
  Transmission Date: 20120403
  Serious: Yes (Other)
  Sender: FDA-Public Use
  Company Number: JP-BAYER-200912687BYL

PATIENT
  Age: 54 Year
  Sex: Male
  Weight: 68 kg

DRUGS (17)
  1. DIOVAN [Concomitant]
     Dosage: SINCE BEFORE ADMINISTRATION
     Route: 048
  2. PYDOXAL [Concomitant]
     Indication: PALMAR-PLANTAR ERYTHRODYSAESTHESIA SYNDROME
     Dosage: 30 MG (DAILY DOSE), , ORAL
     Route: 048
     Dates: start: 20090709, end: 20090826
  3. CLINDAMYCIN PHOSPHATE [Concomitant]
     Indication: ECZEMA
     Route: 061
     Dates: start: 20090909
  4. NEXAVAR [Suspect]
     Route: 048
     Dates: start: 20090729
  5. ADALAT [Concomitant]
     Indication: HYPERTENSION
     Dosage: 20 MG (DAILY DOSE), , ORAL
     Route: 048
     Dates: start: 20091029
  6. RABEPRAZOLE SODIUM [Concomitant]
     Dosage: SINCE BEFORE ADMINISTRATION
     Route: 048
  7. URSO 250 [Concomitant]
     Dosage: SINCE BEFORE ADMINISTRATION
     Route: 048
  8. PYDOXAL [Concomitant]
     Indication: ECZEMA
     Dosage: 30 MG (DAILY DOSE), , ORAL
     Route: 048
     Dates: start: 20090909
  9. CLINDAMYCIN PHOSPHATE [Concomitant]
  10. LENDORMIN [Concomitant]
     Dosage: SINCE BEFORE ADMINISTRATION
     Route: 048
  11. AMLODIPINE [Concomitant]
     Dosage: 5 MG (DAILY DOSE), , ORAL
     Route: 048
     Dates: start: 20090705
  12. HEPAN ED [Concomitant]
     Dosage: SINCE BEFORE ADMINISTRATION
     Route: 048
  13. GLAKAY [Concomitant]
     Dosage: SINCE BEFORE ADMINISTRATION
     Route: 048
     Dates: end: 20090909
  14. AMLODIPINE [Concomitant]
     Dosage: 5 MG (DAILY DOSE), , ORAL
     Route: 048
     Dates: start: 20090706, end: 20091028
  15. NEXAVAR [Suspect]
     Indication: HEPATIC NEOPLASM MALIGNANT
     Route: 048
     Dates: start: 20090701, end: 20090729
  16. AMLODIPINE [Concomitant]
     Indication: HYPERTENSION
     Dosage: SINCE BEFORE ADMINISTRATION
     Route: 048
     Dates: end: 20090704
  17. CANDESARTAN CILEXETIL [Concomitant]
     Route: 048

REACTIONS (8)
  - ARRHYTHMIA SUPRAVENTRICULAR [None]
  - ALOPECIA [None]
  - STOMATITIS [None]
  - PLATELET COUNT DECREASED [None]
  - LIVER FUNCTION TEST ABNORMAL [None]
  - HYPERTENSION [None]
  - RASH [None]
  - PALMAR-PLANTAR ERYTHRODYSAESTHESIA SYNDROME [None]
